FAERS Safety Report 9494164 (Version 1)
Quarter: 2013Q3

REPORT INFORMATION
  Report Type: Spontaneous
  Country: US (occurrence: None)
  Receive Date: 20130828
  Receipt Date: 20130828
  Transmission Date: 20140515
  Serious: Yes (Hospitalization)
  Sender: FDA-Public Use
  Company Number: 2013080148

PATIENT
  Sex: Male

DRUGS (1)
  1. FELBATOL (FELBAMATE) [Suspect]
     Indication: EPILEPSY

REACTIONS (4)
  - Nausea [None]
  - Vomiting [None]
  - Diplopia [None]
  - Abdominal pain upper [None]
